FAERS Safety Report 6603481-8 (Version None)
Quarter: 2010Q1

REPORT INFORMATION
  Report Type: 
  Country: None (occurrence: None)
  Receive Date: 20100218
  Receipt Date: 20100205
  Transmission Date: 20100710
  Serious: Yes (Death, Hospitalization, Other)
  Sender: FDA-Public Use
  Company Number: A-US2009-32505

PATIENT
  Age: 49 Year
  Sex: Female
  Weight: 96.5 kg

DRUGS (8)
  1. TRACLEER [Suspect]
     Indication: PULMONARY ARTERIAL HYPERTENSION
     Dosage: 62.5 MG, BID, ORAL
     Route: 048
     Dates: start: 20070801
  2. FUROSEMIDE [Concomitant]
  3. SPIRONOLACTONE [Concomitant]
  4. COUMADIN [Concomitant]
  5. OXYGEN (OXYGEN) [Concomitant]
  6. FLOLAN [Concomitant]
  7. NITRIC OXIDE [Concomitant]
  8. SILDENAFIL CITRATE [Concomitant]

REACTIONS (14)
  - CARDIAC FAILURE CONGESTIVE [None]
  - CARDIOVASCULAR INSUFFICIENCY [None]
  - CONDITION AGGRAVATED [None]
  - DISEASE PROGRESSION [None]
  - GENERALISED OEDEMA [None]
  - HAEMOPTYSIS [None]
  - HYPOTENSION [None]
  - HYPOXIA [None]
  - INTERNATIONAL NORMALISED RATIO INCREASED [None]
  - NO THERAPEUTIC RESPONSE [None]
  - PULMONARY ARTERIAL HYPERTENSION [None]
  - RENAL FAILURE [None]
  - RIGHT VENTRICULAR FAILURE [None]
  - THERAPEUTIC RESPONSE DECREASED [None]
